FAERS Safety Report 9572213 (Version 1)
Quarter: 2013Q4

REPORT INFORMATION
  Report Type: Spontaneous
  Country: US (occurrence: US)
  Receive Date: 20131001
  Receipt Date: 20131001
  Transmission Date: 20140711
  Serious: No
  Sender: FDA-Public Use
  Company Number: US-BIOGENIDEC-2013BI068033

PATIENT
  Age: 24 Year
  Sex: Female
  Weight: 61 kg

DRUGS (2)
  1. TECFIDERA [Suspect]
     Indication: MULTIPLE SCLEROSIS
     Route: 048
     Dates: start: 20130601
  2. TECFIDERA [Suspect]
     Indication: MULTIPLE SCLEROSIS
     Route: 048
     Dates: start: 20130627, end: 20130704

REACTIONS (7)
  - Flushing [Recovered/Resolved]
  - Pruritus [Recovered/Resolved]
  - Abdominal pain upper [Unknown]
  - Muscle spasms [Unknown]
  - Cold sweat [Unknown]
  - Abdominal pain [Recovered/Resolved]
  - Rash [Recovered/Resolved]
